FAERS Safety Report 7819834-6 (Version None)
Quarter: 2011Q4

REPORT INFORMATION
  Report Type: 
  Country: None (occurrence: None)
  Receive Date: 20111018
  Receipt Date: 20101220
  Transmission Date: 20120403
  Serious: No
  Sender: FDA-Public Use
  Company Number: US-ASTRAZENECA-2010SE59942

PATIENT
  Age: 58 Year
  Sex: Male

DRUGS (2)
  1. SYMBICORT [Suspect]
     Indication: ASTHMA LATE ONSET
     Dosage: 640 MCG BID
     Route: 055
     Dates: start: 20101001
  2. PULMICORT [Suspect]
     Route: 055

REACTIONS (3)
  - DEPRESSION [None]
  - ANXIETY [None]
  - LETHARGY [None]
